FAERS Safety Report 8368866-0 (Version None)
Quarter: 2012Q2

REPORT INFORMATION
  Report Type: 
  Country: None (occurrence: None)
  Receive Date: 20120516
  Receipt Date: 20120507
  Transmission Date: 20120825
  Serious: Yes (Congenital Anomaly, Other)
  Sender: FDA-Public Use
  Company Number: GER/GER/12/0024231

PATIENT
  Sex: Female

DRUGS (4)
  1. HYDROCORTONE [Concomitant]
  2. ASTONIN-H (FLUDROCORTISONE) [Concomitant]
  3. DEXAMETHASONE [Concomitant]
  4. LAMOTRIGINE [Suspect]
     Indication: PRODUCT USED FOR UNKNOWN INDICATION
     Dosage: TRANSPLACENTAL
     Route: 064
     Dates: start: 20100224, end: 20100712

REACTIONS (8)
  - TALIPES [None]
  - CEREBELLAR HYPOPLASIA [None]
  - BRACHYCEPHALY [None]
  - POLYHYDRAMNIOS [None]
  - OESOPHAGEAL ATRESIA [None]
  - CEREBRAL VENTRICLE DILATATION [None]
  - RETROGNATHIA [None]
  - MATERNAL DRUGS AFFECTING FOETUS [None]
